FAERS Safety Report 6530866-0 (Version None)
Quarter: 2010Q1

REPORT INFORMATION
  Report Type: 
  Country: None (occurrence: None)
  Receive Date: 20100108
  Receipt Date: 20090422
  Transmission Date: 20100710
  Serious: No
  Sender: FDA-Public Use
  Company Number: A0780137A

PATIENT
  Age: 44 Year
  Sex: Male

DRUGS (3)
  1. LOVAZA [Suspect]
     Indication: BLOOD CHOLESTEROL INCREASED
     Dosage: 1G TWICE PER DAY
     Route: 048
     Dates: start: 20070101, end: 20090415
  2. METOPROLOL TARTRATE [Concomitant]
  3. VASOTEC [Concomitant]

REACTIONS (1)
  - GOUT [None]
